FAERS Safety Report 17080394 (Version 1)
Quarter: 2019Q4

REPORT INFORMATION
  Report Type: Spontaneous
  Country: IT (occurrence: IT)
  Receive Date: 20191127
  Receipt Date: 20191127
  Transmission Date: 20200122
  Serious: Yes (Other)
  Sender: FDA-Public Use
  Company Number: IT-TEVA-2019-IT-1141909

PATIENT
  Age: 38 Year
  Sex: Male
  Weight: 92 kg

DRUGS (4)
  1. VINCRISTINE [Suspect]
     Active Substance: VINCRISTINE
     Indication: SARCOMA
     Dosage: 2 MG PER 1 CYCLICAL
     Route: 042
     Dates: start: 20190917, end: 20190917
  2. DOXORUBICIN HYDROCHLORIDE. [Suspect]
     Active Substance: DOXORUBICIN HYDROCHLORIDE
     Indication: SARCOMA
     Dosage: 20 MG PER 1 CYCLICAL
     Route: 042
     Dates: start: 20190917, end: 20190919
  3. ACCOFIL 30 MU/0.5 ML SOLUTION FOR INJECTION OR INFUSION IN PRE-FILLED [Concomitant]
     Indication: COLONY STIMULATING FACTOR THERAPY
     Dosage: 30 MU/0.5 ML SOLUTION FOR INJECTION OR INFUSION IN PRE-FILLED
     Route: 058
     Dates: start: 20190921, end: 20190926
  4. IFOSFAMIDE. [Suspect]
     Active Substance: IFOSFAMIDE
     Indication: SARCOMA
     Dosage: 3000 MG PER 1 CYCLICAL
     Route: 042
     Dates: start: 20190917, end: 20190919

REACTIONS (2)
  - Neutropenia [Recovered/Resolved]
  - Leukopenia [Recovered/Resolved]

NARRATIVE: CASE EVENT DATE: 20190927
